FAERS Safety Report 5460892-4 (Version None)
Quarter: 2007Q3

REPORT INFORMATION
  Report Type: 
  Country: None (occurrence: None)
  Receive Date: 20070827
  Receipt Date: 20070525
  Transmission Date: 20080115
  Serious: Yes (Other)
  Sender: FDA-Public Use
  Company Number: 2007029217

PATIENT
  Age: 69 Year
  Sex: Male
  Weight: 77.1 kg

DRUGS (6)
  1. VFEND [Suspect]
     Indication: FUNGAL INFECTION
     Dosage: 2 IN 1 D)
     Dates: start: 20070101
  2. LASIX [Concomitant]
  3. POTASSIUM CHLORIDE [Concomitant]
  4. TOPROL-XL [Concomitant]
  5. ZOCOR [Concomitant]
  6. LEUKINE [Concomitant]

REACTIONS (1)
  - WHITE BLOOD CELL COUNT DECREASED [None]
